FAERS Safety Report 6618973-5 (Version None)
Quarter: 2010Q1

REPORT INFORMATION
  Report Type: 
  Country: None (occurrence: None)
  Receive Date: 20100308
  Receipt Date: 20100223
  Transmission Date: 20100710
  Serious: Yes (Other)
  Sender: FDA-Public Use
  Company Number: PHHY2010CA11040

PATIENT
  Sex: Male

DRUGS (3)
  1. GLEEVEC [Suspect]
     Indication: GASTROINTESTINAL STROMAL TUMOUR
     Dosage: 400 MG, UNK
     Route: 048
     Dates: start: 20091201, end: 20100101
  2. FLUOROURACIL W/OXALIPLATIN [Concomitant]
  3. CHEMOTHERAPEUTICS NOS [Concomitant]
     Indication: COLORECTAL CANCER

REACTIONS (4)
  - AGEUSIA [None]
  - DECREASED APPETITE [None]
  - FATIGUE [None]
  - WEIGHT DECREASED [None]
